FAERS Safety Report 9535992 (Version 1)
Quarter: 2013Q2

REPORT INFORMATION
  Report Type: Spontaneous
  Country: US (occurrence: None)
  Receive Date: 20130507
  Receipt Date: 20130507
  Transmission Date: 20140414
  Serious: Yes (Other)
  Sender: FDA-Public Use
  Company Number: PHHY2011US14237

PATIENT
  Age: 7 Year
  Sex: Female

DRUGS (6)
  1. AFINITOR [Suspect]
     Indication: ASTROCYTOMA
     Route: 048
     Dates: start: 20110204
  2. AFINITOR [Suspect]
     Indication: TUBEROUS SCLEROSIS
     Route: 048
     Dates: start: 20110204
  3. GUANFACINE HYDROCHLORIDE [Suspect]
  4. TOPAMAX (TOPIRAMATE) [Concomitant]
  5. CLONAZEPAM [Concomitant]
  6. RISPERDAL (RISPERIDONE) [Concomitant]

REACTIONS (5)
  - Self injurious behaviour [None]
  - Speech disorder [None]
  - Drooling [None]
  - Gingival disorder [None]
  - Oedema mouth [None]
